FAERS Safety Report 6367602-7 (Version None)
Quarter: 2009Q3

REPORT INFORMATION
  Report Type: 
  Country: None (occurrence: None)
  Receive Date: 20090921
  Receipt Date: 20090911
  Transmission Date: 20100115
  Serious: Yes (Hospitalization)
  Sender: FDA-Public Use
  Company Number: US-ABBOTT-09P-163-0596508-00

PATIENT
  Sex: Female
  Weight: 56.75 kg

DRUGS (8)
  1. SYNTHROID [Suspect]
     Indication: HYPOTHYROIDISM
     Dosage: UNSURE
     Route: 048
     Dates: start: 19910101, end: 20090301
  2. SYNTHROID [Suspect]
     Indication: THYROIDECTOMY
     Route: 048
     Dates: start: 20090301, end: 20090501
  3. SYNTHROID [Suspect]
     Route: 048
     Dates: start: 20090801
  4. SYNTHROID [Suspect]
     Route: 048
  5. SYNTHROID [Suspect]
     Route: 048
  6. CYTOMEL [Concomitant]
     Indication: THYROID DISORDER
     Route: 048
     Dates: start: 20090801, end: 20090801
  7. MINOCYCLINE HCL [Concomitant]
     Indication: ACNE
     Route: 048
     Dates: start: 20050101
  8. THYROID TAB [Concomitant]
     Indication: THYROID DISORDER
     Route: 048
     Dates: start: 20090701, end: 20090701

REACTIONS (7)
  - AGITATION [None]
  - AMENORRHOEA [None]
  - HEADACHE [None]
  - NERVOUSNESS [None]
  - PALPITATIONS [None]
  - RESPIRATORY DISORDER [None]
  - THYROIDECTOMY [None]
